FAERS Safety Report 15708234 (Version 7)
Quarter: 2020Q1

REPORT INFORMATION
  Report Type: Spontaneous
  Country: US (occurrence: US)
  Receive Date: 20181211
  Receipt Date: 20200228
  Transmission Date: 20200409
  Serious: Yes (Hospitalization)
  Sender: FDA-Public Use
  Company Number: US-PFIZER INC-2018276114

PATIENT
  Age: 75 Year
  Sex: Female
  Weight: 65.76 kg

DRUGS (8)
  1. OMEPRAZOLE. [Concomitant]
     Active Substance: OMEPRAZOLE
     Indication: GASTROINTESTINAL DISORDER
  2. LETROZOLE. [Concomitant]
     Active Substance: LETROZOLE
     Dosage: 25 MG, 1X/DAY
  3. IBRANCE [Suspect]
     Active Substance: PALBOCICLIB
     Dosage: 125 MG, CYCLIC(125 MG BY MOUTH, 21 DAYS ON, OFF A WEEK)
     Route: 048
     Dates: end: 20200108
  4. IBRANCE [Suspect]
     Active Substance: PALBOCICLIB
     Indication: BREAST CANCER FEMALE
     Dosage: 125 MG, 1X/DAY
     Route: 048
  5. CALCIUM + VITAMIN D3 [Concomitant]
     Active Substance: CALCIUM CARBONATE\CHOLECALCIFEROL
     Dosage: UNK(SHE TAKES 2 OF THEM, CALCIUM 600 AND VIT D3 800)
  6. IBRANCE [Suspect]
     Active Substance: PALBOCICLIB
     Dosage: UNK
     Route: 048
  7. LEVOTHYROXINE. [Concomitant]
     Active Substance: LEVOTHYROXINE
     Indication: THYROID DISORDER
     Dosage: 88 MG, 1X/DAY
  8. ONE A DAY ADVANCE ADULTS [Concomitant]
     Indication: VITAMIN SUPPLEMENTATION
     Dosage: UNK, 1X/DAY

REACTIONS (9)
  - Anaemia [Unknown]
  - Gastroenteritis viral [Recovered/Resolved]
  - Onychomycosis [Not Recovered/Not Resolved]
  - Cystitis [Recovered/Resolved]
  - Malaise [Recovered/Resolved]
  - Alopecia [Not Recovered/Not Resolved]
  - Neoplasm progression [Unknown]
  - Diarrhoea [Recovered/Resolved]
  - White blood cell count decreased [Unknown]

NARRATIVE: CASE EVENT DATE: 201905
